FAERS Safety Report 11703834 (Version 1)
Quarter: 2015Q4

REPORT INFORMATION
  Report Type: Spontaneous
  Country: CA (occurrence: CA)
  Receive Date: 20151106
  Receipt Date: 20151106
  Transmission Date: 20160304
  Serious: Yes (Death)
  Sender: FDA-Public Use
  Company Number: CA-HOSPIRA-3064621

PATIENT
  Age: 84 Year
  Sex: Female
  Weight: 87 kg

DRUGS (1)
  1. PACLITAXEL. [Suspect]
     Active Substance: PACLITAXEL
     Indication: BREAST ANGIOSARCOMA METASTATIC
     Route: 065

REACTIONS (1)
  - Death [Fatal]
